FAERS Safety Report 7120903-7 (Version None)
Quarter: 2010Q4

REPORT INFORMATION
  Report Type: 
  Country: None (occurrence: None)
  Receive Date: 20101124
  Receipt Date: 20101112
  Transmission Date: 20110411
  Serious: No
  Sender: FDA-Public Use
  Company Number: US-JNJFOC-20101105145

PATIENT
  Sex: Female
  Weight: 102.06 kg

DRUGS (14)
  1. DURAGESIC-100 [Suspect]
     Indication: BACK PAIN
     Route: 062
  2. FENTANYL-100 [Suspect]
     Indication: BACK PAIN
     Route: 062
  3. NPH INSULIN [Concomitant]
     Indication: TYPE 2 DIABETES MELLITUS
     Dosage: 50 UNITS. 30 UNITS AT MORNING AND 20 UNITS AT BEDTIME
     Route: 058
  4. NORVASC [Concomitant]
     Indication: HYPERTENSION
     Route: 048
  5. PRINIVIL [Concomitant]
     Indication: HYPERTENSION
     Route: 048
  6. NEURONTIN [Concomitant]
     Indication: NEURALGIA
     Route: 048
  7. ZOCOR [Concomitant]
     Indication: BLOOD CHOLESTEROL INCREASED
     Dosage: AT BEDTIME
     Route: 048
  8. DESYREL [Concomitant]
     Indication: SLEEP DISORDER THERAPY
     Dosage: 2 TABLETS AT BEDTIME
     Route: 048
  9. DESYREL [Concomitant]
     Indication: DEPRESSION
     Dosage: 2 TABLETS AT BEDTIME
     Route: 048
  10. ALBUTEROL [Concomitant]
     Indication: ASTHMA
     Dosage: AS NECESSARY
     Route: 055
  11. SYMBICORT [Concomitant]
     Indication: ASTHMA
     Dosage: AS NEEDED
     Route: 055
  12. ASPIRIN [Concomitant]
     Indication: ILL-DEFINED DISORDER
     Route: 048
  13. PROZAC [Concomitant]
     Indication: DEPRESSION
     Route: 048
  14. LASIX [Concomitant]
     Indication: ILL-DEFINED DISORDER
     Route: 048

REACTIONS (3)
  - APPLICATION SITE RASH [None]
  - PRODUCT ADHESION ISSUE [None]
  - WRONG TECHNIQUE IN DRUG USAGE PROCESS [None]
